FAERS Safety Report 4604932-0 (Version None)
Quarter: 2005Q1

REPORT INFORMATION
  Report Type: 
  Country: None (occurrence: None)
  Receive Date: 20050310
  Receipt Date: 20050310
  Transmission Date: 20050727
  Serious: Yes (Hospitalization)
  Sender: FDA-Public Use
  Company Number: None

PATIENT
  Age: 82 Year
  Sex: Female

DRUGS (13)
  1. WARFARIN [Suspect]
     Indication: THROMBOSIS PROPHYLAXIS
     Dosage: 8 MG DAILY ORAL
     Route: 048
     Dates: start: 20040101, end: 20041229
  2. AZITHROMYCIN [Suspect]
     Indication: BRONCHITIS
     Dosage: TWO TABLETS ONCE ORAL
     Route: 048
     Dates: start: 20041228, end: 20041228
  3. FUROSEMIDE [Concomitant]
  4. POTASSIUM CHLORIDE [Concomitant]
  5. LISINOPRIL [Concomitant]
  6. PREDNISONE [Concomitant]
  7. ALLOPURINOL [Concomitant]
  8. FOSAMAX [Concomitant]
  9. CALCIUM GLUCONATE [Concomitant]
  10. DIGITEK [Concomitant]
  11. ASPIRIN [Concomitant]
  12. ALBUTEROL [Concomitant]
  13. NORVASC [Concomitant]

REACTIONS (11)
  - ATRIAL FIBRILLATION [None]
  - BRONCHITIS [None]
  - CARDIAC FAILURE CONGESTIVE [None]
  - COAGULOPATHY [None]
  - CONDITION AGGRAVATED [None]
  - CONTUSION [None]
  - DRUG INTERACTION [None]
  - DYSPNOEA EXACERBATED [None]
  - ECCHYMOSIS [None]
  - HYPOPROTHROMBINAEMIA [None]
  - INTERNATIONAL NORMALISED RATIO INCREASED [None]
